FAERS Safety Report 5359900-0 (Version None)
Quarter: 2007Q2

REPORT INFORMATION
  Report Type: 
  Country: None (occurrence: None)
  Receive Date: 20070531
  Receipt Date: 20070223
  Transmission Date: 20071010
  Serious: Yes (Hospitalization)
  Sender: FDA-Public Use
  Company Number: 07P-163-0360202-00

PATIENT
  Age: 33 Year
  Sex: Male
  Weight: 98 kg

DRUGS (4)
  1. TRICOR [Suspect]
     Indication: BLOOD TRIGLYCERIDES INCREASED
     Dosage: 145 MG, 1 IN 1 D, PER ORAL YEARS AGO
     Route: 048
     Dates: end: 20070220
  2. QUETIAPINE [Concomitant]
  3. CRESTOR [Concomitant]
  4. DEPAKOTE ER [Concomitant]

REACTIONS (2)
  - BLOOD TRIGLYCERIDES INCREASED [None]
  - PANCREATITIS ACUTE [None]
